FAERS Safety Report 6585369-4 (Version None)
Quarter: 2010Q1

REPORT INFORMATION
  Report Type: 
  Country: None (occurrence: None)
  Receive Date: 20100201
  Receipt Date: 20090305
  Transmission Date: 20100710
  Serious: Yes (Hospitalization)
  Sender: FDA-Public Use
  Company Number: 8043736

PATIENT

DRUGS (1)
  1. KEPPRA [Suspect]
     Indication: STATUS EPILEPTICUS

REACTIONS (2)
  - ENZYME ABNORMALITY [None]
  - PANCREATITIS [None]
